FAERS Safety Report 8099291-8 (Version None)
Quarter: 2012Q1

REPORT INFORMATION
  Report Type: 
  Country: None (occurrence: None)
  Receive Date: 20120129
  Receipt Date: 20111018
  Transmission Date: 20120608
  Serious: No
  Sender: FDA-Public Use
  Company Number: US-ABBOTT-11P-163-0866786-00

PATIENT
  Sex: Female
  Weight: 77.18 kg

DRUGS (16)
  1. OMEPRAZOLE [Concomitant]
     Indication: ULCER
  2. AZOTHIAPRINE [Concomitant]
     Indication: CROHN'S DISEASE
  3. METOPROLOL TARTRATE [Concomitant]
     Indication: HYPERTENSION
  4. ASPIRIN [Concomitant]
     Indication: CARDIAC DISORDER
  5. REMERON [Concomitant]
     Indication: SCHIZOAFFECTIVE DISORDER BIPOLAR TYPE
  6. WELLBUTRIN [Concomitant]
     Indication: SCHIZOAFFECTIVE DISORDER BIPOLAR TYPE
  7. CARBON FORTE [Concomitant]
     Indication: PAIN
  8. ZYRTEC [Concomitant]
     Indication: HYPERSENSITIVITY
  9. CYCLOBENZAPRINE [Concomitant]
     Indication: PRODUCT USED FOR UNKNOWN INDICATION
  10. HUMIRA [Suspect]
     Indication: CROHN'S DISEASE
     Dates: start: 20110801
  11. SEROQUEL [Concomitant]
     Indication: SCHIZOAFFECTIVE DISORDER BIPOLAR TYPE
  12. ALBUTEROL [Concomitant]
     Indication: ASTHMA
  13. COMPAZINE [Concomitant]
     Indication: NAUSEA
  14. PHENERGAN [Concomitant]
     Indication: NAUSEA
  15. SIMVASTATIN [Concomitant]
     Indication: HYPERLIPIDAEMIA
  16. FLONASE [Concomitant]
     Indication: HYPERSENSITIVITY

REACTIONS (5)
  - ONYCHOCLASIS [None]
  - LIMB INJURY [None]
  - FALL [None]
  - CONTUSION [None]
  - THERAPEUTIC RESPONSE UNEXPECTED [None]
